FAERS Safety Report 13958337 (Version 3)
Quarter: 2017Q3

REPORT INFORMATION
  Report Type: Spontaneous
  Country: US (occurrence: US)
  Receive Date: 20170912
  Receipt Date: 20170918
  Transmission Date: 20171128
  Serious: No
  Sender: FDA-Public Use
  Company Number: US-PFIZER INC-2017388780

PATIENT
  Age: 52 Year
  Sex: Female
  Weight: 45.36 kg

DRUGS (1)
  1. XANAX [Suspect]
     Active Substance: ALPRAZOLAM
     Dosage: 2 MG, 4X/DAY

REACTIONS (5)
  - Counterfeit drug administered [Unknown]
  - Anxiety [Unknown]
  - Malaise [Unknown]
  - Feeling abnormal [Unknown]
  - Withdrawal syndrome [Unknown]
